FAERS Safety Report 22969231 (Version 2)
Quarter: 2023Q4

REPORT INFORMATION
  Report Type: Spontaneous
  Country: US (occurrence: US)
  Receive Date: 20230922
  Receipt Date: 20231011
  Transmission Date: 20240110
  Serious: No
  Sender: FDA-Public Use
  Company Number: US-ABBVIE-5416339

PATIENT

DRUGS (4)
  1. OXYBUTYNIN [Suspect]
     Active Substance: OXYBUTYNIN
     Indication: Hot flush
     Dosage: FORM STRENGTH: 3.9 MG/DAY
     Route: 065
     Dates: start: 202307
  2. IBRANCE [Suspect]
     Active Substance: PALBOCICLIB
     Indication: Neoplasm malignant
     Dosage: LAST ADMINISTRATION DATE- 2023
     Route: 065
     Dates: start: 20230720
  3. IBRANCE [Suspect]
     Active Substance: PALBOCICLIB
     Indication: Neoplasm malignant
     Dosage: DOSAGE 125
     Route: 065
     Dates: start: 202308
  4. IBRANCE [Suspect]
     Active Substance: PALBOCICLIB
     Indication: Neoplasm malignant
     Dosage: DOSAGE 125
     Route: 065
     Dates: start: 202309

REACTIONS (4)
  - Adverse drug reaction [Unknown]
  - Nausea [Not Recovered/Not Resolved]
  - Dizziness [Not Recovered/Not Resolved]
  - Alopecia [Not Recovered/Not Resolved]

NARRATIVE: CASE EVENT DATE: 20230101
